FAERS Safety Report 16651174 (Version 1)
Quarter: 2019Q3

REPORT INFORMATION
  Report Type: Spontaneous
  Country: US (occurrence: US)
  Receive Date: 20190731
  Receipt Date: 20190731
  Transmission Date: 20191004
  Serious: Yes (Hospitalization, Other)
  Sender: FDA-Public Use
  Company Number: US-DRREDDYS-USA/USA/19/0112581

PATIENT
  Age: 65 Year
  Sex: Female

DRUGS (5)
  1. IDARUBICIN [Suspect]
     Active Substance: IDARUBICIN
     Indication: ACUTE MYELOID LEUKAEMIA
     Dosage: 12 MG/M2 IVPB DAYS 1 THROUGH 3
     Route: 042
  2. DECITABINE. [Suspect]
     Active Substance: DECITABINE
     Indication: ACUTE MYELOID LEUKAEMIA
     Dosage: DECITABINE 15 MG/M2 IVPB EVERY 8 H ON DAYS 1 THROUGH 3
     Route: 042
  3. MIDOSTAURIN [Suspect]
     Active Substance: MIDOSTAURIN
     Indication: ACUTE MYELOID LEUKAEMIA
     Dosage: MIDOSTAURIN 50 MG PO EVERY 12 H ON DAY 8 THROUGH 21 ALONG WITH IT CHEMOTHERAPY AND COMPLETED 14 DAY
  4. CYTARABINE. [Suspect]
     Active Substance: CYTARABINE
     Indication: ACUTE MYELOID LEUKAEMIA
     Dosage: INFUSIONAL CYTARABINE 100 MG/M2 IVPB (INTRAVENOUS PIGGYBACK) DAYS 1 THROUGH 7
     Route: 042
  5. SORAFENIB [Suspect]
     Active Substance: SORAFENIB
     Indication: ACUTE MYELOID LEUKAEMIA
     Dosage: ON DAYS 8 THROUGH 21

REACTIONS (3)
  - Febrile neutropenia [Unknown]
  - Pancytopenia [Unknown]
  - Leukaemia recurrent [Unknown]
